FAERS Safety Report 8047311 (Version 2)
Quarter: 2012Q4

REPORT INFORMATION
  Report Type: 
  Country: JP (occurrence: KR)
  Receive Date: 20110721
  Receipt Date: 20121101
  Transmission Date: 20130627
  Serious: Yes (Hospitalization)
  Sender: FDA-Public Use
  Company Number: KR-AMGEN-KORSP2011035737

PATIENT
  Age: 30 Year
  Sex: Female

DRUGS (5)
  1. REGPARA [Suspect]
     Indication: HYPERPARATHYROIDISM
     Dosage: UNK
     Route: 048
  2. CODEIN [Concomitant]
     Indication: COUGH
  3. CODEIN [Concomitant]
     Indication: MUSCULOSKELETAL CHEST PAIN
  4. ZITHROMAX [Concomitant]
     Indication: COUGH
  5. ZITHROMAX [Concomitant]
     Indication: MUSCULOSKELETAL CHEST PAIN

REACTIONS (1)
  - Pleural effusion [Recovered/Resolved]
